FAERS Safety Report 9815556 (Version 3)
Quarter: 2014Q1

REPORT INFORMATION
  Report Type: Spontaneous
  Country: US (occurrence: US)
  Receive Date: 20140114
  Receipt Date: 20140310
  Transmission Date: 20141002
  Serious: Yes (Hospitalization)
  Sender: FDA-Public Use
  Company Number: US-JNJFOC-20140102156

PATIENT
  Age: 80 Year
  Sex: Female
  Weight: 58.97 kg

DRUGS (3)
  1. UNSPECIFIED NUCYNTA [Suspect]
     Indication: PAIN
     Route: 048
     Dates: start: 201307, end: 2013
  2. METOPROLOL [Concomitant]
     Indication: BLOOD PRESSURE
     Route: 065
  3. LISINOPRIL [Concomitant]
     Indication: BLOOD PRESSURE
     Route: 048

REACTIONS (4)
  - Impaired healing [Recovered/Resolved]
  - Bone disorder [Recovered/Resolved]
  - Infection [Recovered/Resolved]
  - Gait disturbance [Not Recovered/Not Resolved]
